FAERS Safety Report 14331167 (Version 1)
Quarter: 2017Q4

REPORT INFORMATION
  Report Type: Report from Study
  Country: CA (occurrence: CA)
  Receive Date: 20171228
  Receipt Date: 20171228
  Transmission Date: 20180321
  Serious: Yes (Hospitalization)
  Sender: FDA-Public Use
  Company Number: CA-INCYTE CORPORATION-2017IN011068

PATIENT

DRUGS (2)
  1. JAKAVI [Suspect]
     Active Substance: RUXOLITINIB
     Indication: MYELOFIBROSIS
     Dosage: 40 MG, QD (2 TABS IN MORNING, 2 TABS IN EVENING)
     Route: 048
  2. JAKAVI [Suspect]
     Active Substance: RUXOLITINIB
     Dosage: 2 DF, QD (1 TAB IN THE MORNING, 1 TAB IN EVENING)
     Route: 048

REACTIONS (7)
  - Decreased appetite [Unknown]
  - Bladder disorder [Unknown]
  - Spleen disorder [Unknown]
  - Hepatomegaly [Unknown]
  - Malaise [Unknown]
  - Weight decreased [Unknown]
  - Renal disorder [Unknown]
